FAERS Safety Report 6027534-0 (Version None)
Quarter: 2008Q4

REPORT INFORMATION
  Report Type: 
  Country: None (occurrence: None)
  Receive Date: 20081222
  Receipt Date: 20080908
  Transmission Date: 20090506
  Serious: No
  Sender: FDA-Public Use
  Company Number: US-WYE-H05324208

PATIENT
  Age: 57 Year
  Sex: Female
  Weight: 88.98 kg

DRUGS (4)
  1. PRISTIQ [Suspect]
     Indication: DEPRESSION
     Dosage: 50 MG 1X PER 1 DAY, ORAL
     Route: 048
     Dates: start: 20080515, end: 20080804
  2. TEMAZEPAM [Concomitant]
  3. CARAFATE [Concomitant]
  4. ALLEGRA [Concomitant]

REACTIONS (6)
  - ANXIETY [None]
  - CONDITION AGGRAVATED [None]
  - DIZZINESS [None]
  - NAUSEA [None]
  - SEDATION [None]
  - TREMOR [None]
